FAERS Safety Report 9638307 (Version 1)
Quarter: 2013Q4

REPORT INFORMATION
  Report Type: Spontaneous
  Country: DE (occurrence: DE)
  Receive Date: 20131022
  Receipt Date: 20131022
  Transmission Date: 20140711
  Serious: Yes (Other)
  Sender: FDA-Public Use
  Company Number: DE-JNJFOC-20131012549

PATIENT
  Age: 68 Year
  Sex: Female
  Weight: 89.8 kg

DRUGS (6)
  1. XARELTO [Suspect]
     Indication: CEREBROVASCULAR ACCIDENT PROPHYLAXIS
     Route: 048
     Dates: start: 20120403, end: 20130304
  2. XARELTO [Suspect]
     Indication: ATRIAL FIBRILLATION
     Route: 048
     Dates: start: 20120403, end: 20130304
  3. SIMVASTATIN [Concomitant]
     Route: 065
  4. BELOC (METOPROLOL TARTRATE) [Concomitant]
     Route: 065
  5. DELIX [Concomitant]
     Route: 065
  6. CYNT [Concomitant]
     Route: 065

REACTIONS (3)
  - Renal failure [Unknown]
  - Urinary bladder haemorrhage [Recovered/Resolved]
  - Epistaxis [Unknown]
